FAERS Safety Report 5418274-7 (Version None)
Quarter: 2007Q3

REPORT INFORMATION
  Report Type: 
  Country: None (occurrence: None)
  Receive Date: 20070817
  Receipt Date: 20070813
  Transmission Date: 20080115
  Serious: Yes (Hospitalization)
  Sender: FDA-Public Use
  Company Number: B0483161A

PATIENT
  Age: 42 Year
  Sex: Female

DRUGS (2)
  1. COMBIVIR [Suspect]
     Indication: ANTIVIRAL PROPHYLAXIS
     Dosage: 1TAB TWICE PER DAY
     Route: 048
     Dates: start: 20061120, end: 20061206
  2. VIRACEPT [Suspect]
     Indication: ANTIVIRAL PROPHYLAXIS
     Dosage: 250MG TWICE PER DAY
     Route: 048
     Dates: start: 20061120, end: 20061206

REACTIONS (6)
  - ASTHENIA [None]
  - BLOOD AMYLASE INCREASED [None]
  - DENGUE FEVER [None]
  - DIARRHOEA [None]
  - HEPATOCELLULAR DAMAGE [None]
  - TRANSAMINASES INCREASED [None]
